FAERS Safety Report 6218651-0 (Version None)
Quarter: 2009Q2

REPORT INFORMATION
  Report Type: 
  Country: None (occurrence: None)
  Receive Date: 20090608
  Receipt Date: 20090529
  Transmission Date: 20091009
  Serious: Yes (Hospitalization)
  Sender: FDA-Public Use
  Company Number: JP-NOVOPROD-287987

PATIENT
  Age: 56 Year
  Sex: Male

DRUGS (2)
  1. NOVORAPID 30 MIX CHU PENFILL [Suspect]
     Indication: TYPE 2 DIABETES MELLITUS
     Dates: start: 20071101
  2. INNOLET N CHU [Suspect]
     Indication: TYPE 2 DIABETES MELLITUS
     Dates: start: 20070701

REACTIONS (4)
  - ANTI-INSULIN ANTIBODY POSITIVE [None]
  - DIABETES MELLITUS INADEQUATE CONTROL [None]
  - HYPERGLYCAEMIA [None]
  - PANCREAS INFECTION [None]
